FAERS Safety Report 19361339 (Version 4)
Quarter: 2023Q1

REPORT INFORMATION
  Report Type: Spontaneous
  Country: US (occurrence: US)
  Receive Date: 20210603
  Receipt Date: 20230124
  Transmission Date: 20230417
  Serious: Yes (Other)
  Sender: FDA-Public Use
  Company Number: US-SA-SAC20210601001154

PATIENT
  Sex: Male
  Weight: 72.5 kg

DRUGS (8)
  1. ALPROLIX [Suspect]
     Active Substance: EFTRENONACOG ALFA
     Indication: Haemophilia
     Dosage: 6900 U, Q10D
     Route: 042
     Dates: start: 201706
  2. ALPROLIX [Suspect]
     Active Substance: EFTRENONACOG ALFA
     Indication: Haemophilia
     Dosage: 6900 U, Q10D
     Route: 042
     Dates: start: 201706
  3. ALPROLIX [Suspect]
     Active Substance: EFTRENONACOG ALFA
     Indication: Factor IX deficiency
     Dosage: 6900 U, Q10D
     Route: 042
     Dates: start: 202002
  4. ALPROLIX [Suspect]
     Active Substance: EFTRENONACOG ALFA
     Indication: Factor IX deficiency
     Dosage: 6900 U, Q10D
     Route: 042
     Dates: start: 202002
  5. ALPROLIX [Suspect]
     Active Substance: EFTRENONACOG ALFA
     Dosage: UNK
     Route: 042
     Dates: start: 202105
  6. ALPROLIX [Suspect]
     Active Substance: EFTRENONACOG ALFA
     Dosage: UNK
     Route: 042
     Dates: start: 202105
  7. ALPROLIX [Suspect]
     Active Substance: EFTRENONACOG ALFA
     Dosage: 6900 IU, Q10D
     Route: 042
     Dates: start: 20221104
  8. ALPROLIX [Suspect]
     Active Substance: EFTRENONACOG ALFA
     Dosage: 6900 IU, Q10D
     Route: 042
     Dates: start: 20221104

REACTIONS (2)
  - Haemorrhage [Recovered/Resolved]
  - Weight increased [Unknown]
